FAERS Safety Report 7808988-3 (Version None)
Quarter: 2011Q4

REPORT INFORMATION
  Report Type: 
  Country: None (occurrence: None)
  Receive Date: 20111012
  Receipt Date: 20111004
  Transmission Date: 20120403
  Serious: Yes (Hospitalization)
  Sender: FDA-Public Use
  Company Number: DE-SANOFI-AVENTIS-2011SA053222

PATIENT
  Age: 58 Year
  Sex: Male
  Weight: 127 kg

DRUGS (18)
  1. ALL OTHER THERAPEUTIC PRODUCTS [Concomitant]
     Route: 048
  2. LASIX [Concomitant]
     Indication: HYPERTENSION
     Route: 048
  3. CEFUROXIME [Concomitant]
     Dates: start: 20110729, end: 20110729
  4. METRONIDAZOLE [Concomitant]
     Route: 042
     Dates: start: 20110729, end: 20110729
  5. ESIDRIX [Concomitant]
     Route: 048
  6. AMLODIPINE [Concomitant]
     Route: 048
  7. SIMVASTATIN [Concomitant]
     Route: 048
  8. METFORMIN HYDROCHLORIDE [Concomitant]
     Route: 048
  9. RAMIPRIL [Concomitant]
     Indication: HYPERTENSION
     Route: 048
  10. PANTOPRAZOLE [Concomitant]
     Indication: PROPHYLAXIS
     Route: 048
  11. GLYBURIDE [Concomitant]
     Route: 048
  12. BISOPROLOL FUMARATE [Concomitant]
     Indication: HYPERTENSION
     Route: 048
  13. XELODA [Suspect]
     Indication: RECTAL CANCER
     Route: 048
     Dates: start: 20110509
  14. XELODA [Suspect]
     Route: 048
     Dates: end: 20110707
  15. ACETYLSALICYLIC ACID [Concomitant]
     Route: 048
  16. OXALIPLATIN [Suspect]
     Indication: RECTAL CANCER
     Route: 042
     Dates: start: 20110505, end: 20110505
  17. OXALIPLATIN [Suspect]
     Route: 042
     Dates: start: 20110606, end: 20110606
  18. THERAPEUTIC RADIOPHARMACEUTICALS [Suspect]
     Indication: RECTAL CANCER
     Dates: start: 20110524, end: 20110701

REACTIONS (2)
  - IMPAIRED HEALING [None]
  - WOUND INFECTION [None]
